FAERS Safety Report 13079176 (Version 1)
Quarter: 2017Q1

REPORT INFORMATION
  Report Type: Spontaneous
  Country: CA (occurrence: CA)
  Receive Date: 20170103
  Receipt Date: 20170103
  Transmission Date: 20170428
  Serious: Yes (Other)
  Sender: FDA-Public Use
  Company Number: CA-TEVA-724874ACC

PATIENT
  Age: 84 Year
  Sex: Male
  Weight: 49 kg

DRUGS (7)
  1. LYRICA [Concomitant]
     Active Substance: PREGABALIN
  2. BACLOFEN. [Suspect]
     Active Substance: BACLOFEN
     Dosage: 20 MILLIGRAM DAILY;
  3. TYLENOL [Concomitant]
     Active Substance: ACETAMINOPHEN
  4. ASA [Concomitant]
     Active Substance: ASPIRIN
  5. BACLOFEN. [Suspect]
     Active Substance: BACLOFEN
     Indication: MUSCLE SPASTICITY
     Dosage: 10 MILLIGRAM DAILY;
  6. NEXIUM [Suspect]
     Active Substance: ESOMEPRAZOLE MAGNESIUM
     Route: 065
  7. COVERSYL [Concomitant]
     Active Substance: PERINDOPRIL

REACTIONS (2)
  - Salivary hypersecretion [Recovered/Resolved]
  - Choking [Recovered/Resolved]
